FAERS Safety Report 5577458-8 (Version None)
Quarter: 2007Q4

REPORT INFORMATION
  Report Type: 
  Country: None (occurrence: None)
  Receive Date: 20071228
  Receipt Date: 20071218
  Transmission Date: 20080405
  Serious: Yes (Other)
  Sender: FDA-Public Use
  Company Number: US-PFIZER INC-2007106770

PATIENT
  Sex: Male
  Weight: 86.2 kg

DRUGS (3)
  1. CHANTIX [Suspect]
     Indication: SMOKING CESSATION THERAPY
     Route: 048
     Dates: start: 20060901, end: 20071101
  2. ALLEGRA-D - SLOW RELEASE [Concomitant]
  3. VITAMIN CAP [Concomitant]

REACTIONS (13)
  - ABNORMAL BEHAVIOUR [None]
  - COGNITIVE DISORDER [None]
  - EMOTIONAL DISORDER [None]
  - HIATUS HERNIA [None]
  - INSOMNIA [None]
  - IRRITABILITY [None]
  - MALAISE [None]
  - NAUSEA [None]
  - ORAL HERPES [None]
  - PSYCHIATRIC SYMPTOM [None]
  - SMOKER [None]
  - VOMITING [None]
  - WEIGHT DECREASED [None]
